FAERS Safety Report 14268093 (Version 1)
Quarter: 2017Q4

REPORT INFORMATION
  Report Type: Spontaneous
  Country: FR (occurrence: FR)
  Receive Date: 20171211
  Receipt Date: 20171211
  Transmission Date: 20180321
  Serious: Yes (Other)
  Sender: FDA-Public Use
  Company Number: FR-009507513-1712FRA004039

PATIENT
  Sex: Male

DRUGS (1)
  1. BRIDION [Suspect]
     Active Substance: SUGAMMADEX
     Dosage: (4 ANSWERS TO THE TIME OF FLIGHT (TOF)); A DOSE OF BRIDION 1 MG/KG

REACTIONS (1)
  - Unilateral bronchospasm [Recovered/Resolved]
